FAERS Safety Report 9561815 (Version 2)
Quarter: 2013Q4

REPORT INFORMATION
  Report Type: Spontaneous
  Country: JP (occurrence: JP)
  Receive Date: 20130927
  Receipt Date: 20131002
  Transmission Date: 20140711
  Serious: Yes (Hospitalization)
  Sender: FDA-Public Use
  Company Number: JP-SANOFI-AVENTIS-2013SA094882

PATIENT
  Age: 62 Year
  Sex: Male

DRUGS (1)
  1. ONETAXOTERE [Suspect]
     Indication: PRODUCT USED FOR UNKNOWN INDICATION
     Route: 042
     Dates: start: 20130708, end: 20130812

REACTIONS (1)
  - Lung disorder [Recovered/Resolved]
